FAERS Safety Report 13395655 (Version 2)
Quarter: 2017Q2

REPORT INFORMATION
  Report Type: Spontaneous
  Country: HU (occurrence: HU)
  Receive Date: 20170403
  Receipt Date: 20170419
  Transmission Date: 20170830
  Serious: Yes (Other)
  Sender: FDA-Public Use
  Company Number: HU-ROCHE-1913230

PATIENT
  Sex: Male

DRUGS (3)
  1. ACTILYSE [Suspect]
     Active Substance: ALTEPLASE
     Indication: CEREBRAL ARTERY OCCLUSION
     Dosage: 10% OF 0.9 MG/KG (0.09 MG/KG) AS INTRAVENOUS BOLUS INJECTION
     Route: 040
     Dates: start: 20170124, end: 20170124
  2. ACTILYSE [Suspect]
     Active Substance: ALTEPLASE
     Dosage: 90% OF 0.9MG/KG (0.81MG/KG) AS INTRAVENOUS DRIP INFUSION ADMINSITERED IN 1 HOUR
     Route: 041
     Dates: start: 20170124
  3. ASPIRIN PROTECT [Concomitant]
     Active Substance: ASPIRIN
     Indication: MYOCARDIAL ISCHAEMIA
     Route: 065

REACTIONS (3)
  - Haemorrhagic anaemia [Recovered/Resolved]
  - Therapy non-responder [Unknown]
  - Muscle haemorrhage [Unknown]
